FAERS Safety Report 4825180-5 (Version None)
Quarter: 2005Q4

REPORT INFORMATION
  Report Type: 
  Country: None (occurrence: None)
  Receive Date: 20051109
  Receipt Date: 20051028
  Transmission Date: 20060501
  Serious: Yes (Hospitalization)
  Sender: FDA-Public Use
  Company Number: 2005P1000513

PATIENT
  Age: 76 Year
  Sex: Male
  Weight: 84 kg

DRUGS (10)
  1. RETEPLASE (RETEPLASE) [Suspect]
     Indication: ACUTE MYOCARDIAL INFARCTION
     Dosage: IV
     Route: 042
     Dates: start: 20050110
  2. ABCIXIMAB (ABCISIMAB0 [Suspect]
     Indication: ACUTE MYOCARDIAL INFARCTION
     Dosage: IV
     Route: 042
     Dates: start: 20050110
  3. ASPIRIN [Concomitant]
  4. CLOPIODGREL SULFATE [Concomitant]
  5. SIMVASTATIN [Concomitant]
  6. BETAXOLOL HYDROCHLORIDE [Concomitant]
  7. RAMIPRIL [Concomitant]
  8. ISOSORBIDE MONONITRATE [Concomitant]
  9. ALL OTHER THERAPETUIC PRODUCTS [Concomitant]
  10. METOPROLOL [Concomitant]

REACTIONS (5)
  - ANXIETY [None]
  - CHEST PAIN [None]
  - CORONARY ARTERY DISEASE [None]
  - CORONARY ARTERY STENOSIS [None]
  - DRUG INEFFECTIVE [None]
